FAERS Safety Report 20130538 (Version 4)
Quarter: 2022Q3

REPORT INFORMATION
  Report Type: Spontaneous
  Country: CA (occurrence: CA)
  Receive Date: 20211130
  Receipt Date: 20220908
  Transmission Date: 20221026
  Serious: Yes (Other)
  Sender: FDA-Public Use
  Company Number: CA-PFIZER INC-2018281576

PATIENT
  Age: 51 Year
  Sex: Female

DRUGS (29)
  1. SOMAVERT [Suspect]
     Active Substance: PEGVISOMANT
     Indication: Acromegaly
     Dosage: THREE TIMES WEEKLY(EVERY MONDAY, WEDNESDAY AND SATURDAY)
     Route: 058
     Dates: start: 20180827, end: 2018
  2. SOMAVERT [Suspect]
     Active Substance: PEGVISOMANT
     Dosage: ONCE A DAY
     Route: 058
     Dates: start: 20181106, end: 201812
  3. SOMAVERT [Suspect]
     Active Substance: PEGVISOMANT
     Dosage: ONCE A DAY
     Route: 058
     Dates: start: 201812, end: 201912
  4. SOMAVERT [Suspect]
     Active Substance: PEGVISOMANT
     Dosage: 5 TIMES A WEEK
     Route: 058
     Dates: start: 201912, end: 2020
  5. SOMAVERT [Suspect]
     Active Substance: PEGVISOMANT
     Dosage: SEVEN TIMES A WEEK
     Route: 058
  6. SOMAVERT [Suspect]
     Active Substance: PEGVISOMANT
     Dosage: 25 MG, DAILY
     Route: 058
  7. SOMAVERT [Suspect]
     Active Substance: PEGVISOMANT
     Dosage: 1X/DAY
     Route: 058
     Dates: start: 2020
  8. ACCURETIC [Concomitant]
     Active Substance: HYDROCHLOROTHIAZIDE\QUINAPRIL HYDROCHLORIDE
     Dosage: 1 DF, 20/25 MG, DAILY (1X/DAY)
     Route: 048
  9. AMLODIPINE [Concomitant]
     Active Substance: AMLODIPINE BESYLATE
     Dosage: 10 MG, Q UNK
     Route: 065
  10. NIFEDIPINE [Concomitant]
     Active Substance: NIFEDIPINE
     Dosage: 60 MG, DAILY (1X/DAY)
     Route: 065
  11. ASPIRIN [Concomitant]
     Active Substance: ASPIRIN
     Dosage: 81 MG, DAILY
     Route: 065
  12. ASPIRIN [Concomitant]
     Active Substance: ASPIRIN
     Dosage: 81 MG
     Route: 065
  13. ASPIRIN [Concomitant]
     Active Substance: ASPIRIN
     Dosage: 81 MG
     Route: 065
  14. ASPIRIN [Concomitant]
     Active Substance: ASPIRIN
     Dosage: 81 MG, DAILY (1X/DAY)
     Route: 065
  15. ESTROGENS [Concomitant]
     Active Substance: ESTROGENS
     Dosage: UNK
     Route: 065
  16. ESTROGENS [Concomitant]
     Active Substance: ESTROGENS
     Dosage: 1 DF, DOSAGE UNKNOWN
     Route: 065
  17. LIPITOR [Concomitant]
     Active Substance: ATORVASTATIN CALCIUM
     Dosage: 80 MG, Q UNK
     Route: 065
  18. METFORMIN [Concomitant]
     Active Substance: METFORMIN HYDROCHLORIDE
     Dosage: UNK, 2X/DAY
     Route: 065
  19. OZEMPIC [Concomitant]
     Active Substance: SEMAGLUTIDE
     Dosage: UNK, WEEKLY
  20. LANREOTIDE ACETATE [Concomitant]
     Active Substance: LANREOTIDE ACETATE
     Dosage: UNK, 3X/DAY
  21. LANREOTIDE ACETATE [Concomitant]
     Active Substance: LANREOTIDE ACETATE
     Dosage: 120 MG, 4 TIMES WEEKLY
  22. LANREOTIDE ACETATE [Concomitant]
     Active Substance: LANREOTIDE ACETATE
     Dosage: UNKNOWN Q 3 WEEKS
  23. LANREOTIDE ACETATE [Concomitant]
     Active Substance: LANREOTIDE ACETATE
     Dosage: 1 DF, EVERY 3 WEEKS, DOSAGE UNKNOWN
     Route: 065
  24. SYNTHROID [Concomitant]
     Active Substance: LEVOTHYROXINE SODIUM
     Dosage: 0.137 MG, DAILY (1X/DAY)
     Route: 065
  25. TYLENOL WITH CODEINE [Concomitant]
     Active Substance: ACETAMINOPHEN\CODEINE PHOSPHATE
     Dosage: UNK, AS NEEDED
     Route: 065
  26. TYLENOL EXTRA STRENGTH [Concomitant]
     Active Substance: ACETAMINOPHEN
     Dosage: UNK
     Route: 065
  27. VAGIFEM [Concomitant]
     Active Substance: ESTRADIOL
     Dosage: UNK, 2X/WEEK (110 2X/WEEK )
     Route: 065
  28. VAGIFEM [Concomitant]
     Active Substance: ESTRADIOL
     Dosage: UNK, 2X/WEEK (10 2X/WEEK )
     Route: 065
  29. VITAMIN D3 [Concomitant]
     Active Substance: CHOLECALCIFEROL
     Dosage: UNK
     Route: 065

REACTIONS (7)
  - Diabetes mellitus [Recovering/Resolving]
  - Headache [Not Recovered/Not Resolved]
  - Fatigue [Unknown]
  - Off label use [Unknown]
  - Product use issue [Unknown]
  - Drug dose omission by device [Unknown]
  - Needle issue [Unknown]

NARRATIVE: CASE EVENT DATE: 20180827
